FAERS Safety Report 14204940 (Version 1)
Quarter: 2017Q4

REPORT INFORMATION
  Report Type: Spontaneous
  Country: CN (occurrence: CN)
  Receive Date: 20171120
  Receipt Date: 20171120
  Transmission Date: 20180321
  Serious: Yes (Death)
  Sender: FDA-Public Use
  Company Number: CN-CORDEN PHARMA LATINA S.P.A.-CN-2017COR000228

PATIENT
  Age: 18 Year
  Sex: Female

DRUGS (3)
  1. ETOPOSIDE. [Suspect]
     Active Substance: ETOPOSIDE
     Indication: HISTIOCYTOSIS HAEMATOPHAGIC
     Dosage: 10 MG/KG, ON DAYS -6 TO -5
  2. CYCLOPHOSPHAMIDE. [Suspect]
     Active Substance: CYCLOPHOSPHAMIDE
     Indication: HISTIOCYTOSIS HAEMATOPHAGIC
     Dosage: 3.6 G/M^2 ON DAYS -4 TO -3
  3. RADIOTHERAPY [Suspect]
     Active Substance: RADIATION THERAPY
     Indication: HISTIOCYTOSIS HAEMATOPHAGIC
     Dosage: 800 GY ON DAYS-8 TO -7

REACTIONS (2)
  - Acinetobacter infection [Fatal]
  - Pulmonary haemorrhage [Fatal]
